FAERS Safety Report 4884075-1 (Version None)
Quarter: 2006Q1

REPORT INFORMATION
  Report Type: 
  Country: None (occurrence: None)
  Receive Date: 20060117
  Receipt Date: 20060105
  Transmission Date: 20060701
  Serious: Yes (Death, Hospitalization)
  Sender: FDA-Public Use
  Company Number: MEDI-0004022

PATIENT
  Age: 1 Month
  Sex: Male

DRUGS (3)
  1. SYNAGIS [Suspect]
     Indication: ANTIVIRAL PROPHYLAXIS
     Dosage: 1 IN 30 D INTRAMUSCULAR
     Route: 030
     Dates: start: 20051220, end: 20051220
  2. FERROUS SULFATE TAB [Concomitant]
  3. MULTIVITAMINS (SEE IMAGE) [Concomitant]

REACTIONS (3)
  - LOSS OF CONSCIOUSNESS [None]
  - NEONATAL ASPIRATION [None]
  - NEONATAL RESPIRATORY ARREST [None]
